FAERS Safety Report 5045995-0 (Version None)
Quarter: 2006Q2

REPORT INFORMATION
  Report Type: 
  Country: None (occurrence: None)
  Receive Date: 20060601
  Receipt Date: 20060317
  Transmission Date: 20061013
  Serious: No
  Sender: FDA-Public Use
  Company Number: 2006PV010420

PATIENT
  Age: 78 Year
  Sex: Female
  Weight: 70.3075 kg

DRUGS (6)
  1. BYETTA [Suspect]
     Indication: DIABETES MELLITUS NON-INSULIN-DEPENDENT
     Dosage: 5 MCG; BID; SC
     Route: 058
     Dates: start: 20060308
  2. GLUCOPHAGE [Concomitant]
  3. ACTOS [Concomitant]
  4. CRANBERRY [Concomitant]
  5. PRANDID ^NOVO NORDISK^ [Concomitant]
  6. HUMALOG 70/30 [Concomitant]

REACTIONS (1)
  - BLOOD GLUCOSE INCREASED [None]
